FAERS Safety Report 7562797-1 (Version None)
Quarter: 2011Q2

REPORT INFORMATION
  Report Type: 
  Country: None (occurrence: None)
  Receive Date: 20110622
  Receipt Date: 20110615
  Transmission Date: 20111010
  Serious: Yes (Hospitalization)
  Sender: FDA-Public Use
  Company Number: HU-B.I. PHARMACEUTICALS,INC./RIDGEFIELD-2011-AP-00334AP

PATIENT
  Age: 72 Year
  Sex: Female

DRUGS (5)
  1. BISOPROLOL FUMARATE [Concomitant]
  2. ASPIRIN [Concomitant]
  3. TIOTROPIUM BROMIDE [Suspect]
     Indication: CHRONIC OBSTRUCTIVE PULMONARY DISEASE
     Route: 055
     Dates: start: 20101217, end: 20110408
  4. NOLPAZA [Concomitant]
  5. CLOPIDOGREL [Concomitant]

REACTIONS (1)
  - MYOCARDIAL INFARCTION [None]
